FAERS Safety Report 9221206 (Version 1)
Quarter: 2013Q2

REPORT INFORMATION
  Report Type: Spontaneous
  Country: US (occurrence: US)
  Receive Date: 20130410
  Receipt Date: 20130410
  Transmission Date: 20140414
  Serious: Yes (Other)
  Sender: FDA-Public Use
  Company Number: US-AMGEN-USASP2013002326

PATIENT
  Age: 76 Year
  Sex: Female
  Weight: 74.29 kg

DRUGS (10)
  1. PROCRIT [Suspect]
     Indication: NEPHROPATHY
     Dosage: 20000 UNIT, PRN
     Route: 042
     Dates: start: 200612
  2. FUROSEMIDE [Concomitant]
     Dosage: 40 MG, QD
  3. ALLOPURINOL [Concomitant]
     Indication: HYPERTENSION
     Dosage: 300 MG, QD
     Route: 048
  4. LOSARTAN [Concomitant]
     Indication: HYPERTENSION
     Dosage: 50 MG, QD
     Route: 048
  5. AMLODIPINE [Concomitant]
     Indication: HYPERTENSION
     Dosage: 10 MG, QD
     Route: 048
  6. PRAVASTATIN SODIUM [Concomitant]
     Dosage: 40 MG, QD
     Route: 048
  7. ASPIRIN [Concomitant]
     Indication: CARDIAC DISORDER
     Dosage: 325 MG, QD
     Route: 048
  8. CLONIDINE HCL [Concomitant]
     Dosage: 0.1 MG, BID
  9. SODIUM BICARBONATE [Concomitant]
     Dosage: 6.50 MG, BID
  10. POTASSIUM CHLORIDE [Concomitant]
     Dosage: 10 MG, QD

REACTIONS (2)
  - Blood count abnormal [Not Recovered/Not Resolved]
  - Underdose [Not Recovered/Not Resolved]
